FAERS Safety Report 17518900 (Version 2)
Quarter: 2020Q3

REPORT INFORMATION
  Report Type: Spontaneous
  Country: GB (occurrence: GB)
  Receive Date: 20200309
  Receipt Date: 20200703
  Transmission Date: 20201102
  Serious: Yes (Other)
  Sender: FDA-Public Use
  Company Number: GB-BAUSCH-BL-2020-006011

PATIENT
  Age: 83 Year
  Sex: Female

DRUGS (8)
  1. AMOXICILLIN. [Concomitant]
     Active Substance: AMOXICILLIN
     Indication: CHRONIC RESPIRATORY DISEASE
  2. HYDROXYCHLOROQUINE [Concomitant]
     Active Substance: HYDROXYCHLOROQUINE
     Indication: PRODUCT USED FOR UNKNOWN INDICATION
  3. PREDNISOLONE. [Suspect]
     Active Substance: PREDNISOLONE
     Indication: RHEUMATOID ARTHRITIS
     Route: 065
  4. CEFRADINE [Concomitant]
     Active Substance: CEPHRADINE
     Indication: PROPHYLAXIS URINARY TRACT INFECTION
  5. PREDNISOLONE. [Suspect]
     Active Substance: PREDNISOLONE
     Route: 065
  6. SULFASALAZINE. [Concomitant]
     Active Substance: SULFASALAZINE
     Indication: PRODUCT USED FOR UNKNOWN INDICATION
     Route: 065
  7. AMOXICILLIN. [Concomitant]
     Active Substance: AMOXICILLIN
     Indication: PSEUDOMONAS INFECTION
  8. PREDNISOLONE. [Suspect]
     Active Substance: PREDNISOLONE
     Indication: GIANT CELL ARTERITIS
     Route: 065

REACTIONS (2)
  - Cataract [Unknown]
  - Urinary tract infection [Unknown]
